FAERS Safety Report 11248239 (Version 1)
Quarter: 2015Q3

REPORT INFORMATION
  Report Type: Spontaneous
  Country: US (occurrence: None)
  Receive Date: 20150707
  Receipt Date: 20150707
  Transmission Date: 20151125
  Serious: Yes (Hospitalization)
  Sender: FDA-Public Use
  Company Number: None

PATIENT
  Age: 33 Year
  Sex: Female
  Weight: 74.84 kg

DRUGS (1)
  1. MAGNESIUM SULFATE IV [Suspect]
     Active Substance: MAGNESIUM SULFATE

REACTIONS (2)
  - Memory impairment [None]
  - Amnesia [None]

NARRATIVE: CASE EVENT DATE: 20150203
